FAERS Safety Report 9416479 (Version 1)
Quarter: 2013Q3

REPORT INFORMATION
  Report Type: Report from Study
  Country: BR (occurrence: BR)
  Receive Date: 20130724
  Receipt Date: 20130724
  Transmission Date: 20140515
  Serious: Yes (Other)
  Sender: FDA-Public Use
  Company Number: PHHY2013BR078237

PATIENT
  Age: 74 Year
  Sex: Female

DRUGS (6)
  1. EXELON PATCH [Suspect]
     Indication: AMNESIA
     Dosage: 4.6 MG (PATCH 5 CM2), DAILY
     Route: 062
  2. EXELON PATCH [Suspect]
     Dosage: 9.5 MG (PATCH 10 CM2), DAILY
     Route: 062
     Dates: start: 20130712, end: 20130718
  3. SIMVASTATIN [Concomitant]
     Indication: BLOOD CHOLESTEROL ABNORMAL
     Dosage: UNK UKN, DAILY
  4. SPIRONOLACTONE [Concomitant]
     Dosage: 0.5 DF, UNK
  5. PURAN T4 [Concomitant]
     Dosage: UNK UKN, UNK
  6. DESOL [Concomitant]
     Dosage: UNK UKN, UNK

REACTIONS (10)
  - Apparent death [Recovered/Resolved]
  - Malaise [Recovered/Resolved]
  - Abnormal behaviour [Recovered/Resolved]
  - Eating disorder [Recovered/Resolved]
  - Blood pressure decreased [Recovered/Resolved]
  - Abdominal pain upper [Recovered/Resolved]
  - Weight decreased [Recovered/Resolved]
  - Nausea [Recovered/Resolved]
  - Retching [Recovered/Resolved]
  - Drug ineffective [Unknown]
